FAERS Safety Report 5372736-X (Version None)
Quarter: 2007Q2

REPORT INFORMATION
  Report Type: 
  Country: None (occurrence: None)
  Receive Date: 20070627
  Receipt Date: 20070615
  Transmission Date: 20071010
  Serious: Yes (Hospitalization)
  Sender: FDA-Public Use
  Company Number: IT-PFIZER INC-2007032593

PATIENT
  Sex: Male
  Weight: 79 kg

DRUGS (2)
  1. SU-011,248 [Suspect]
     Indication: METASTATIC RENAL CELL CARCINOMA
     Route: 048
     Dates: start: 20060623, end: 20061022
  2. SU-011,248 [Suspect]
     Route: 048

REACTIONS (1)
  - RESPIRATORY FAILURE [None]
